FAERS Safety Report 11605667 (Version 1)
Quarter: 2015Q4

REPORT INFORMATION
  Report Type: Spontaneous
  Country: DK (occurrence: DK)
  Receive Date: 20151007
  Receipt Date: 20151007
  Transmission Date: 20160304
  Serious: Yes (Death)
  Sender: FDA-Public Use
  Company Number: PHHY2015DK118721

PATIENT
  Age: 75 Year
  Sex: Male

DRUGS (2)
  1. METHOTREXATE (METHOTREXATE SODIUM) [Suspect]
     Active Substance: METHOTREXATE SODIUM
     Indication: PSORIATIC ARTHROPATHY
     Dosage: 10 MG, QW, STRENGTH: 10 MG
     Route: 048
     Dates: start: 20150624, end: 20150909
  2. PREDNISOLON [Suspect]
     Active Substance: PREDNISOLONE
     Indication: PSORIATIC ARTHROPATHY
     Route: 048
     Dates: start: 20150624

REACTIONS (7)
  - Mechanical ventilation [Fatal]
  - Hypercapnia [Fatal]
  - Pneumonitis [Fatal]
  - Endotracheal intubation [Fatal]
  - Pneumonia [Fatal]
  - Respiratory failure [Fatal]
  - Pneumomediastinum [Fatal]

NARRATIVE: CASE EVENT DATE: 20150709
